FAERS Safety Report 6795194-7 (Version None)
Quarter: 2010Q2

REPORT INFORMATION
  Report Type: 
  Country: None (occurrence: None)
  Receive Date: 20100625
  Receipt Date: 20100617
  Transmission Date: 20101027
  Serious: Yes (Hospitalization)
  Sender: FDA-Public Use
  Company Number: NL-ROCHE-710150

PATIENT
  Sex: Female

DRUGS (2)
  1. HERCEPTIN [Suspect]
     Indication: BREAST CANCER
     Route: 042
     Dates: end: 20100611
  2. HERCEPTIN [Suspect]
     Route: 042

REACTIONS (6)
  - METASTASES TO CENTRAL NERVOUS SYSTEM [None]
  - MUSCLE SPASMS [None]
  - MUSCULAR WEAKNESS [None]
  - NECK PAIN [None]
  - PARAESTHESIA [None]
  - VOMITING [None]
